FAERS Safety Report 9895598 (Version 1)
Quarter: 2014Q1

REPORT INFORMATION
  Report Type: Spontaneous
  Country: US (occurrence: US)
  Receive Date: 20140213
  Receipt Date: 20140213
  Transmission Date: 20141002
  Serious: No
  Sender: FDA-Public Use
  Company Number: US-BRISTOL-MYERS SQUIBB COMPANY-17240060

PATIENT
  Age: 57 Year
  Sex: Female

DRUGS (15)
  1. ABATACEPT SUBQ INJECTION 125MG/ML [Suspect]
     Indication: RHEUMATOID ARTHRITIS
     Route: 058
  2. SPIRONOLACTONE + HCTZ [Suspect]
  3. AMBIEN [Concomitant]
  4. BACTROBAN [Concomitant]
  5. CLINDAMYCIN [Concomitant]
     Dosage: GEL
  6. FOLIC ACID [Concomitant]
  7. GABAPENTIN [Concomitant]
  8. LISINOPRIL [Concomitant]
  9. METFORMIN [Concomitant]
  10. METHOTREXATE [Concomitant]
  11. MORPHINE [Concomitant]
  12. MULTIVITAMIN [Concomitant]
  13. PAXIL [Concomitant]
  14. TOPROL [Concomitant]
  15. WELLBUTRIN [Concomitant]

REACTIONS (1)
  - Hypotension [Unknown]
